FAERS Safety Report 5738709-X (Version None)
Quarter: 2008Q2

REPORT INFORMATION
  Report Type: 
  Country: None (occurrence: None)
  Receive Date: 20080513
  Receipt Date: 20080513
  Transmission Date: 20081010
  Serious: Yes (Hospitalization)
  Sender: FDA-Public Use
  Company Number: None

PATIENT
  Age: 41 Year
  Sex: Female
  Weight: 85.7298 kg

DRUGS (1)
  1. CYMBALTA [Suspect]
     Indication: NEURALGIA
     Dosage: 30 MG CAPSULE 1 CAPSULE A DAY ORAL
     Route: 048
     Dates: start: 20080412, end: 20080415

REACTIONS (10)
  - ANOREXIA [None]
  - BLOOD PRESSURE INCREASED [None]
  - CHILLS [None]
  - DRUG WITHDRAWAL SYNDROME [None]
  - HEART RATE INCREASED [None]
  - INSOMNIA [None]
  - MOOD ALTERED [None]
  - PAIN [None]
  - TREMOR [None]
  - WEIGHT DECREASED [None]
